FAERS Safety Report 16224774 (Version 2)
Quarter: 2019Q2

REPORT INFORMATION
  Report Type: Report from Study
  Country: US (occurrence: US)
  Receive Date: 20190422
  Receipt Date: 20190430
  Transmission Date: 20190711
  Serious: Yes (Hospitalization)
  Sender: FDA-Public Use
  Company Number: US-GILEAD-2019-0402922

PATIENT
  Age: 27 Year
  Sex: Female

DRUGS (1)
  1. AZTREONAM LYSINE [Suspect]
     Active Substance: AZTREONAM LYSINE
     Indication: CYSTIC FIBROSIS
     Dosage: 75 MG, TID FOR 28 DAYS ON AND 28 DAYS OFF, REPEAT
     Route: 055
     Dates: start: 20150929

REACTIONS (4)
  - Dehydration [Unknown]
  - Influenza [Unknown]
  - Obstruction [Not Recovered/Not Resolved]
  - Intentional dose omission [Unknown]
